FAERS Safety Report 7346095-7 (Version None)
Quarter: 2011Q1

REPORT INFORMATION
  Report Type: 
  Country: None (occurrence: None)
  Receive Date: 20110311
  Receipt Date: 20081001
  Transmission Date: 20110831
  Serious: Yes (Death)
  Sender: FDA-Public Use
  Company Number: US-BAYER-201038856NA

PATIENT
  Sex: Female
  Weight: 77 kg

DRUGS (25)
  1. LASIX [Concomitant]
     Dosage: UNK
     Route: 048
     Dates: start: 20001201, end: 20010123
  2. GENTAMICIN [Concomitant]
     Dosage: UNK
     Dates: start: 20010827, end: 20010913
  3. CELEBREX [Concomitant]
     Dosage: 200 MG, PRN
     Route: 048
     Dates: end: 20010123
  4. COUMADIN [Concomitant]
     Dosage: 5 MG, QD
     Route: 048
     Dates: start: 19990426
  5. UNIVASC [Concomitant]
     Dosage: 7.5 MG, QD
     Route: 048
     Dates: start: 19990426
  6. LIPITOR [Concomitant]
     Dosage: 10 MG, QD
     Route: 048
     Dates: end: 20010123
  7. LEVAQUIN [Concomitant]
     Dosage: UNK
     Route: 048
     Dates: start: 20001201, end: 20010123
  8. VANCOMYCIN [Concomitant]
     Dosage: UNK
     Dates: start: 20010827, end: 20010913
  9. PREVACID [Concomitant]
     Dosage: 30 MG, QD
     Dates: start: 20001201
  10. VASOTEC [Concomitant]
     Dosage: UNK
     Route: 048
     Dates: start: 20001201, end: 20010123
  11. AMPICILLIN [Concomitant]
     Dosage: UNK
     Dates: start: 20010212
  12. PROCARDIA [Concomitant]
     Dosage: UNK
     Route: 048
     Dates: start: 20001201, end: 20010123
  13. PAXIL [Concomitant]
     Dosage: 10 MG, QD
     Route: 048
     Dates: start: 19990426
  14. IMDUR [Concomitant]
     Dosage: UNK
     Route: 048
     Dates: start: 20001201, end: 20010123
  15. EPINEPHRINE [Concomitant]
     Indication: HYPOTENSION
     Dosage: UNK
     Route: 042
     Dates: start: 20010123
  16. BLOOD AND RELATED PRODUCTS [Concomitant]
     Dosage: 2 U, UNK
     Dates: start: 20010123
  17. TRASYLOL [Suspect]
     Indication: CORONARY ARTERY BYPASS
     Route: 042
     Dates: start: 20010101
  18. GLUCOTROL XL [Concomitant]
     Dosage: 10 MG, QD
     Route: 048
     Dates: start: 19990426
  19. GLUCOPHAGE [Concomitant]
     Dosage: 850 MG, TID
     Route: 048
     Dates: end: 20010123
  20. EPOGEN [Concomitant]
     Dosage: UNK
     Route: 042
     Dates: start: 20000101, end: 20010123
  21. FOLATE SODIUM [Concomitant]
     Dosage: UNK
     Route: 048
     Dates: start: 20001201, end: 20010123
  22. ADALAT CC [Concomitant]
     Dosage: 60 MG, BID
     Route: 048
     Dates: start: 19990426
  23. AVANDIA [Concomitant]
     Dosage: 8 MG, QD
  24. IRON [Concomitant]
     Dosage: UNK
     Route: 042
     Dates: start: 20000101, end: 20010123
  25. LABETALOL HCL [Concomitant]
     Dosage: 100 MG, BID
     Route: 048
     Dates: start: 20001115

REACTIONS (9)
  - CEREBROVASCULAR ACCIDENT [None]
  - INJURY [None]
  - EMOTIONAL DISTRESS [None]
  - RENAL FAILURE CHRONIC [None]
  - PAIN [None]
  - STRESS [None]
  - MYOCARDIAL ISCHAEMIA [None]
  - DIABETES MELLITUS [None]
  - ANXIETY [None]
